FAERS Safety Report 7359948-0 (Version None)
Quarter: 2011Q1

REPORT INFORMATION
  Report Type: 
  Country: None (occurrence: None)
  Receive Date: 20110317
  Receipt Date: 20110316
  Transmission Date: 20110831
  Serious: Yes (Other)
  Sender: FDA-Public Use
  Company Number: FI-ELI_LILLY_AND_COMPANY-FI201103005299

PATIENT
  Age: 33 Year
  Sex: Female

DRUGS (1)
  1. ZYPADHERA [Suspect]
     Dosage: UNK, UNKNOWN
     Route: 030

REACTIONS (1)
  - EPILEPSY [None]
